FAERS Safety Report 8051954-6 (Version None)
Quarter: 2012Q1

REPORT INFORMATION
  Report Type: 
  Country: None (occurrence: None)
  Receive Date: 20120118
  Receipt Date: 20120113
  Transmission Date: 20120608
  Serious: Yes (Other)
  Sender: FDA-Public Use
  Company Number: US-JNJFOC-20120105091

PATIENT
  Sex: Male
  Weight: 99.79 kg

DRUGS (6)
  1. LOVAZA [Concomitant]
     Indication: NUTRITIONAL SUPPORT
     Route: 065
  2. DURAGESIC-100 [Suspect]
     Indication: HEAD AND NECK CANCER
     Route: 062
     Dates: start: 20090801
  3. ATIVAN [Concomitant]
     Indication: SLEEP DISORDER
     Route: 048
     Dates: start: 20090101
  4. VITAMIN [Concomitant]
     Indication: NUTRITIONAL SUPPORT
     Route: 065
  5. WELLBUTRIN [Concomitant]
     Indication: DEPRESSION
     Route: 048
     Dates: start: 20050101, end: 20111201
  6. VITAMIN B-12 [Concomitant]
     Indication: NUTRITIONAL SUPPORT
     Route: 065

REACTIONS (3)
  - SALIVARY GLAND DISORDER [None]
  - APHONIA [None]
  - HYPOTHYROIDISM [None]
